FAERS Safety Report 8309323-7 (Version None)
Quarter: 2012Q2

REPORT INFORMATION
  Report Type: 
  Country: None (occurrence: None)
  Receive Date: 20120425
  Receipt Date: 20120416
  Transmission Date: 20120825
  Serious: Yes (Other)
  Sender: FDA-Public Use
  Company Number: US-ASTRAZENECA-2011SE53914

PATIENT
  Age: 66 Year
  Sex: Male

DRUGS (3)
  1. RHINOCORT [Suspect]
     Route: 045
  2. ATACAND [Suspect]
     Route: 048
  3. ATENOLOL [Suspect]
     Route: 065

REACTIONS (3)
  - CEREBROVASCULAR ACCIDENT [None]
  - DRUG INEFFECTIVE [None]
  - BLOOD PRESSURE INCREASED [None]
